FAERS Safety Report 17201737 (Version 2)
Quarter: 2020Q1

REPORT INFORMATION
  Report Type: Spontaneous
  Country: DE (occurrence: DE)
  Receive Date: 20191226
  Receipt Date: 20200121
  Transmission Date: 20200409
  Serious: Yes (Hospitalization, Other)
  Sender: FDA-Public Use
  Company Number: DE-PFIZER INC-2019549401

PATIENT
  Age: 14 Year
  Sex: Male
  Weight: 93 kg

DRUGS (1)
  1. XANAX [Suspect]
     Active Substance: ALPRAZOLAM
     Indication: DRUG ABUSE
     Dosage: DAILY DOSE: 9 DF DOSAGE FORM EVERY TOTAL
     Route: 048
     Dates: start: 20190809, end: 20190809

REACTIONS (6)
  - Depressed level of consciousness [Recovered/Resolved]
  - Alcohol use [Recovered/Resolved]
  - Product use issue [Recovered/Resolved]
  - Drug abuse [Recovered/Resolved]
  - General physical health deterioration [Recovered/Resolved]
  - Off label use [Recovered/Resolved]

NARRATIVE: CASE EVENT DATE: 20190809
